FAERS Safety Report 6882757-3 (Version None)
Quarter: 2010Q3

REPORT INFORMATION
  Report Type: 
  Country: None (occurrence: None)
  Receive Date: 20100729
  Receipt Date: 20100719
  Transmission Date: 20110219
  Serious: Yes (Other)
  Sender: FDA-Public Use
  Company Number: BE-ROCHE-716183

PATIENT
  Sex: Female

DRUGS (5)
  1. BONIVA [Suspect]
     Indication: OSTEOPOROSIS POSTMENOPAUSAL
     Route: 048
     Dates: start: 20090401, end: 20091201
  2. LEVOTHYROXINE SODIUM [Concomitant]
     Indication: HYPOTHYROIDISM
     Dates: start: 20060201
  3. APRANAX [Concomitant]
     Indication: ANTIINFLAMMATORY THERAPY
     Dates: start: 20060101
  4. CALCIUM SUPPLEMENT [Concomitant]
     Indication: OSTEOPOROSIS
     Dates: start: 20050601
  5. PANTOMED [Concomitant]
     Indication: ANTACID THERAPY
     Dates: start: 20090901

REACTIONS (2)
  - GINGIVITIS [None]
  - PERIODONTITIS [None]
